FAERS Safety Report 23049902 (Version 1)
Quarter: 2023Q4

REPORT INFORMATION
  Report Type: Spontaneous
  Country: FR (occurrence: FR)
  Receive Date: 20231010
  Receipt Date: 20231010
  Transmission Date: 20240110
  Serious: Yes (Other)
  Sender: FDA-Public Use
  Company Number: None

PATIENT
  Age: 74 Year
  Sex: Female
  Weight: 61 kg

DRUGS (23)
  1. CLOXACILLIN [Suspect]
     Active Substance: CLOXACILLIN
     Indication: Intervertebral discitis
     Dosage: 2 G-6/D
     Route: 042
  2. CLOXACILLIN [Suspect]
     Active Substance: CLOXACILLIN
     Indication: Bacteraemia
     Dosage: 12 GBQ, QD (12 G/D UNTIL 25/07/23)
     Route: 042
  3. CLOXACILLIN [Suspect]
     Active Substance: CLOXACILLIN
     Dosage: 8 G, QD (DOSAGE FORM:1FP. 2 G X 4/D)
     Route: 042
     Dates: start: 20230607, end: 20230718
  4. HEPARIN [Suspect]
     Active Substance: HEPARIN SODIUM
     Dosage: UNK
  5. RIFAMPIN [Suspect]
     Active Substance: RIFAMPIN
     Indication: Intervertebral discitis
     Dosage: 600 MG, QD
     Route: 048
     Dates: start: 20230703, end: 20230714
  6. RIFAMPIN [Suspect]
     Active Substance: RIFAMPIN
     Indication: Endocarditis
     Dosage: 500 MG (2/D)
     Route: 042
     Dates: start: 20230713
  7. RIFAMPIN [Suspect]
     Active Substance: RIFAMPIN
     Indication: Nausea
     Dosage: 600 MG, QD
     Route: 042
     Dates: start: 20230719
  8. RIFAMPIN [Suspect]
     Active Substance: RIFAMPIN
     Indication: Vomiting
  9. GENTAMICIN SULFATE [Suspect]
     Active Substance: GENTAMICIN SULFATE
     Indication: Intervertebral discitis
     Dosage: 160 MG
     Dates: start: 20230612
  10. GENTAMICIN SULFATE [Suspect]
     Active Substance: GENTAMICIN SULFATE
     Indication: Bacteraemia
     Dosage: 3 MG/KG
  11. GENTAMICIN SULFATE [Suspect]
     Active Substance: GENTAMICIN SULFATE
     Dosage: 300 MG (5 MG/KG)
     Dates: start: 20230612, end: 20230615
  12. LOVENOX [Suspect]
     Active Substance: ENOXAPARIN SODIUM
     Dosage: 0.4 ML
  13. LANTUS [Suspect]
     Active Substance: INSULIN GLARGINE
     Dosage: UNK
  14. DIAZEPAM [Suspect]
     Active Substance: DIAZEPAM
     Dosage: 10 MG, STRENGTH OF 10 MG
  15. ACETAMINOPHEN [Suspect]
     Active Substance: ACETAMINOPHEN
     Dosage: UNK
  16. POTASSIUM CHLORIDE [Suspect]
     Active Substance: POTASSIUM CHLORIDE
     Dosage: UNK
  17. AMIODARONE HYDROCHLORIDE [Suspect]
     Active Substance: AMIODARONE HYDROCHLORIDE
     Indication: Atrial fibrillation
     Dosage: UNK UNK, 1X, 1 LOADING DOSE
     Dates: start: 20230609, end: 20230609
  18. WARFARIN SODIUM [Suspect]
     Active Substance: WARFARIN SODIUM
     Dosage: 3 MG (D1)
     Dates: end: 20230714
  19. LANSOPRAZOLE [Suspect]
     Active Substance: LANSOPRAZOLE
     Indication: Oesophagitis
     Dosage: 15 MG, QD (D1)
     Dates: start: 20230714, end: 20230715
  20. TRAMADOL HYDROCHLORIDE [Suspect]
     Active Substance: TRAMADOL HYDROCHLORIDE
     Dosage: 100 MG (IF NOT RELIEVED BY PARACETAMOL)
  21. ONDANSETRON [Suspect]
     Active Substance: ONDANSETRON
     Dosage: 4 MG (4 MG X 4/D)
  22. FOLIC ACID [Suspect]
     Active Substance: FOLIC ACID
     Dosage: UNK
  23. ACUPAN [Suspect]
     Active Substance: NEFOPAM HYDROCHLORIDE
     Dosage: 20 MG, PRN

REACTIONS (3)
  - Thrombocytopenia [Unknown]
  - Normocytic anaemia [Unknown]
  - Overdose [Unknown]

NARRATIVE: CASE EVENT DATE: 20230712
